FAERS Safety Report 8819734 (Version 2)
Quarter: 2014Q3

REPORT INFORMATION
  Report Type: Report from Study
  Country: US (occurrence: US)
  Receive Date: 20121001
  Receipt Date: 20140912
  Transmission Date: 20150326
  Serious: Yes (Other)
  Sender: FDA-Public Use
  Company Number: US-ROCHE-1102971

PATIENT
  Sex: Female
  Weight: 54.03 kg

DRUGS (10)
  1. HERCEPTIN [Suspect]
     Active Substance: TRASTUZUMAB
     Indication: METASTATIC NEOPLASM
     Dosage: LOADING DOSE
     Route: 042
  2. CARBOPLATIN. [Concomitant]
     Active Substance: CARBOPLATIN
  3. TAGAMET [Concomitant]
     Active Substance: CIMETIDINE
  4. HERCEPTIN [Suspect]
     Active Substance: TRASTUZUMAB
     Dosage: MAINTENENCE DOSE
     Route: 042
  5. BENADRYL [Concomitant]
     Active Substance: DIPHENHYDRAMINE HYDROCHLORIDE
  6. PROVERA [Concomitant]
     Active Substance: MEDROXYPROGESTERONE ACETATE
  7. TAXOL [Concomitant]
     Active Substance: PACLITAXEL
     Route: 065
     Dates: end: 19980827
  8. PREMPRO [Concomitant]
     Active Substance: ESTROGENS, CONJUGATED\MEDROXYPROGESTERONE ACETATE
  9. DECADRON [Concomitant]
     Active Substance: DEXAMETHASONE
  10. PREMARIN [Concomitant]
     Active Substance: ESTROGENS, CONJUGATED

REACTIONS (9)
  - Vaginal haemorrhage [Unknown]
  - Disease progression [Unknown]
  - Neck pain [Unknown]
  - Metastases to lung [Unknown]
  - Fungal infection [Unknown]
  - Palpitations [Unknown]
  - Neuropathy peripheral [Unknown]
  - Dry mouth [Unknown]
  - Off label use [Unknown]
